FAERS Safety Report 5533146-5 (Version None)
Quarter: 2007Q4

REPORT INFORMATION
  Report Type: 
  Country: None (occurrence: None)
  Receive Date: 20071129
  Receipt Date: 20071129
  Transmission Date: 20080405
  Serious: No
  Sender: FDA-Public Use
  Company Number: None

PATIENT
  Sex: Male
  Weight: 78.7 kg

DRUGS (3)
  1. CARBOPLATIN [Suspect]
     Dosage: 500 MG
     Dates: start: 20071114
  2. ERBITUX [Suspect]
     Dosage: 0 MG CETUXIMAB WAS DISCONTINUED AFTER TWO DOSES DUE TO GRADE 3 RASH PERSISTING GREATER THAN 3 WEEKS
  3. ALIMTA [Suspect]
     Dosage: 770 MG

REACTIONS (1)
  - HYPOKALAEMIA [None]
